FAERS Safety Report 5380811-9 (Version None)
Quarter: 2007Q3

REPORT INFORMATION
  Report Type: 
  Country: None (occurrence: None)
  Receive Date: 20070706
  Receipt Date: 20070702
  Transmission Date: 20080115
  Serious: Yes (Other)
  Sender: FDA-Public Use
  Company Number: US-ASTRAZENECA-2006UW21963

PATIENT
  Sex: Male
  Weight: 106.8 kg

DRUGS (2)
  1. SEROQUEL [Suspect]
     Indication: SLEEP DISORDER
     Dosage: 300 MG 2X DAILY
     Route: 048
     Dates: start: 20000101, end: 20070101
  2. RISPERIDONE [Concomitant]

REACTIONS (3)
  - APPENDICITIS [None]
  - CEREBROVASCULAR ACCIDENT [None]
  - DIABETES MELLITUS [None]
